FAERS Safety Report 7472036-8 (Version None)
Quarter: 2011Q2

REPORT INFORMATION
  Report Type: 
  Country: None (occurrence: None)
  Receive Date: 20110511
  Receipt Date: 20101019
  Transmission Date: 20111010
  Serious: No
  Sender: FDA-Public Use
  Company Number: A0888119A

PATIENT
  Sex: Female

DRUGS (2)
  1. XELODA [Suspect]
     Route: 065
  2. TYKERB [Suspect]
     Dosage: 1250MGD PER DAY
     Route: 048
     Dates: start: 20101018

REACTIONS (12)
  - UPPER RESPIRATORY TRACT CONGESTION [None]
  - DIARRHOEA [None]
  - DYSPEPSIA [None]
  - MOUTH ULCERATION [None]
  - OROPHARYNGEAL PAIN [None]
  - FALL [None]
  - PALPITATIONS [None]
  - DYSPHONIA [None]
  - SLUGGISHNESS [None]
  - TREATMENT NONCOMPLIANCE [None]
  - RESPIRATORY DISORDER [None]
  - LIP DRY [None]
